FAERS Safety Report 23487866 (Version 3)
Quarter: 2024Q1

REPORT INFORMATION
  Report Type: Spontaneous
  Country: JP (occurrence: JP)
  Receive Date: 20240206
  Receipt Date: 20240320
  Transmission Date: 20240410
  Serious: Yes (Other)
  Sender: FDA-Public Use
  Company Number: JP-TEVA-VS-3152226

PATIENT
  Age: 85 Year
  Sex: Female

DRUGS (3)
  1. PREDNISOLONE [Suspect]
     Active Substance: PREDNISOLONE
     Indication: Acquired epidermolysis bullosa
     Dosage: 30MG
     Route: 048
  2. PREDNISOLONE [Suspect]
     Active Substance: PREDNISOLONE
     Indication: Acquired epidermolysis bullosa
     Dosage: 5MG
     Route: 048
  3. CYCLOSPORINE [Concomitant]
     Active Substance: CYCLOSPORINE
     Indication: Acquired epidermolysis bullosa
     Dosage: 100MG
     Route: 048

REACTIONS (3)
  - Steroid diabetes [Unknown]
  - Deep vein thrombosis [Unknown]
  - Pulmonary artery thrombosis [Unknown]
